FAERS Safety Report 6141528-6 (Version None)
Quarter: 2009Q2

REPORT INFORMATION
  Report Type: 
  Country: None (occurrence: None)
  Receive Date: 20090401
  Receipt Date: 20090401
  Transmission Date: 20091009
  Serious: Yes (Life-Threatening, Hospitalization)
  Sender: FDA-Public Use
  Company Number: None

PATIENT
  Age: 26 Year
  Sex: Male
  Weight: 79.3795 kg

DRUGS (1)
  1. ZOLPIDIEM TARTRATE 10 MG [Suspect]
     Dosage: 10 MG BEFORE BED 1PO
     Route: 048
     Dates: start: 20081114, end: 20081115

REACTIONS (1)
  - SOMNAMBULISM [None]
